FAERS Safety Report 8145261-0 (Version None)
Quarter: 2012Q1

REPORT INFORMATION
  Report Type: 
  Country: None (occurrence: None)
  Receive Date: 20120217
  Receipt Date: 20120206
  Transmission Date: 20120608
  Serious: Yes (Other)
  Sender: FDA-Public Use
  Company Number: PHHY2012NL010294

PATIENT
  Age: 37 Year
  Sex: Male

DRUGS (4)
  1. MYCOPHENOLIC ACID [Suspect]
     Indication: PEMPHIGUS
     Dosage: 1440 MG, UNK
  2. PREDNISOLONE [Suspect]
     Indication: PEMPHIGUS
     Dosage: 0.5 MG/KG, UNK
  3. DOXYCYCLINE [Suspect]
     Indication: PEMPHIGUS
  4. DEXAMETHASONE [Suspect]
     Indication: PEMPHIGUS

REACTIONS (3)
  - SKIN LESION [None]
  - DRUG RESISTANCE [None]
  - OSTEOPENIA [None]
